FAERS Safety Report 21685599 (Version 2)
Quarter: 2022Q4

REPORT INFORMATION
  Report Type: Report from Study
  Country: US (occurrence: US)
  Receive Date: 20221206
  Receipt Date: 20221214
  Transmission Date: 20230113
  Serious: No
  Sender: FDA-Public Use
  Company Number: US-BRISTOL-MYERS SQUIBB COMPANY-2022-146819

PATIENT
  Age: 64 Year
  Sex: Male
  Weight: 94 kg

DRUGS (16)
  1. REVLIMID [Suspect]
     Active Substance: LENALIDOMIDE
     Indication: Plasma cell myeloma
     Dosage: FREQUENCY: DAILY FOR 28 DAYS.
     Route: 048
     Dates: start: 20210820
  2. ASPIRIN [Concomitant]
     Active Substance: ASPIRIN
     Dosage: LOW DOSE
  3. ATORVASTATIN CALCIUM [Concomitant]
     Active Substance: ATORVASTATIN CALCIUM
  4. OMEPRAZOLE [Concomitant]
     Active Substance: OMEPRAZOLE
     Dosage: DR
  5. DEXAMETHASONE [Concomitant]
     Active Substance: DEXAMETHASONE
  6. VELCADE [Concomitant]
     Active Substance: BORTEZOMIB
     Dosage: VIAL
  7. ZOMETA [Concomitant]
     Active Substance: ZOLEDRONIC ACID
     Dosage: 4MG /ML PGGYBK BTL
  8. ELIQUIS [Concomitant]
     Active Substance: APIXABAN
  9. PREGABALIN [Concomitant]
     Active Substance: PREGABALIN
  10. PREGABALIN [Concomitant]
     Active Substance: PREGABALIN
  11. TRAMADOL HCL [Concomitant]
     Active Substance: TRAMADOL HYDROCHLORIDE
  12. TRAMADOL HCL [Concomitant]
     Active Substance: TRAMADOL HYDROCHLORIDE
     Dosage: POWDER
  13. ACYCLOVIR [Concomitant]
     Active Substance: ACYCLOVIR
  14. ACYCLOVIR [Concomitant]
     Active Substance: ACYCLOVIR
  15. ZOLEDRONIC ACID [Concomitant]
     Active Substance: ZOLEDRONIC ACID
     Dosage: 4MG /5 ML VIAL
  16. NEUPOGEN [Concomitant]
     Active Substance: FILGRASTIM

REACTIONS (1)
  - No adverse event [Unknown]
